FAERS Safety Report 5900286-8 (Version None)
Quarter: 2008Q3

REPORT INFORMATION
  Report Type: 
  Country: None (occurrence: None)
  Receive Date: 20080926
  Receipt Date: 20080924
  Transmission Date: 20090109
  Serious: Yes (Death, Hospitalization, Other)
  Sender: FDA-Public Use
  Company Number: PHBS2008US05808

PATIENT
  Age: 55 Year
  Sex: Female

DRUGS (4)
  1. CYCLOSPORINE [Suspect]
     Indication: HEART TRANSPLANT
     Dosage: 50 MG, BID
  2. MYCOPHENOLATE MOFETIL [Concomitant]
     Indication: HEART TRANSPLANT
     Dosage: 500 MG, BID
  3. PREDNISONE [Concomitant]
     Indication: HEART TRANSPLANT
     Dosage: 2.5 MG, QD
  4. GANCICLOVIR [Concomitant]
     Indication: ANTIVIRAL PROPHYLAXIS

REACTIONS (27)
  - ALANINE AMINOTRANSFERASE INCREASED [None]
  - AREFLEXIA [None]
  - ASPARTATE AMINOTRANSFERASE INCREASED [None]
  - BLOOD BILIRUBIN INCREASED [None]
  - BLOOD CREATININE INCREASED [None]
  - BLOOD GLUCOSE INCREASED [None]
  - BLOOD LACTIC ACID INCREASED [None]
  - BLOOD PRESSURE DECREASED [None]
  - BRAIN OEDEMA [None]
  - CARDIAC HYPERTROPHY [None]
  - CSF TEST ABNORMAL [None]
  - HERPES ZOSTER [None]
  - LOSS OF CONSCIOUSNESS [None]
  - LUNG ABSCESS [None]
  - LUNG DISORDER [None]
  - MUSCLE TWITCHING [None]
  - MYOCARDIAC ABSCESS [None]
  - PURULENT DISCHARGE [None]
  - RENAL FAILURE CHRONIC [None]
  - RENAL INFARCT [None]
  - SCRATCH [None]
  - SEPTIC EMBOLUS [None]
  - SKIN LESION [None]
  - SPLENIC ABSCESS [None]
  - STAPHYLOCOCCAL BACTERAEMIA [None]
  - STAPHYLOCOCCAL SEPSIS [None]
  - THYROID INFARCTION [None]
